FAERS Safety Report 22036806 (Version 5)
Quarter: 2023Q1

REPORT INFORMATION
  Report Type: Spontaneous
  Country: US (occurrence: US)
  Receive Date: 20230225
  Receipt Date: 20230331
  Transmission Date: 20230417
  Serious: No
  Sender: FDA-Public Use
  Company Number: US-002147023-NVSC2023US044402

PATIENT
  Sex: Female

DRUGS (6)
  1. XIIDRA [Suspect]
     Active Substance: LIFITEGRAST
     Indication: Dry eye
     Dosage: 5 %, BID (DROPPERETTE OU)
     Route: 065
  2. RESTASIS [Concomitant]
     Active Substance: CYCLOSPORINE
     Indication: Product used for unknown indication
     Dosage: UNK, BID (DROPPERETTE OU)
     Route: 065
  3. SYSTANE (HYPROMELLOSE 2910 (4000 MPA.S)) [Concomitant]
     Active Substance: HYPROMELLOSE 2910 (4000 MPA.S)
     Indication: Product used for unknown indication
     Dosage: UNK (3-5X PER DAY)
     Route: 065
  4. LEVOTHYROXINE [Concomitant]
     Active Substance: LEVOTHYROXINE
     Indication: Product used for unknown indication
     Dosage: 25 UG
     Route: 048
  5. TROPICAMIDE [Concomitant]
     Active Substance: TROPICAMIDE
     Indication: Investigation
     Dosage: UNK
     Route: 065
  6. PROPARACAINE [Concomitant]
     Active Substance: PROPARACAINE
     Indication: Investigation
     Dosage: UNK
     Route: 065

REACTIONS (2)
  - Pruritus [Unknown]
  - Eye irritation [Unknown]
